FAERS Safety Report 6316963-3 (Version None)
Quarter: 2009Q3

REPORT INFORMATION
  Report Type: 
  Country: None (occurrence: None)
  Receive Date: 20090820
  Receipt Date: 20090805
  Transmission Date: 20100115
  Serious: Yes (Hospitalization)
  Sender: FDA-Public Use
  Company Number: GB-GENENTECH-284844

PATIENT
  Sex: Male

DRUGS (4)
  1. BEVACIZUMAB [Suspect]
     Indication: GASTRIC CANCER
     Dosage: 612 MG, UNK
     Route: 042
     Dates: start: 20090121
  2. CAPECITABINE [Suspect]
     Indication: GASTRIC CANCER
     Dosage: 2500 MG, UNK
     Route: 048
     Dates: start: 20090121
  3. CISPLATIN [Suspect]
     Indication: GASTRIC CANCER
     Dosage: 114 MG, UNK
     Route: 042
     Dates: start: 20090121
  4. EPIRUBICIN [Suspect]
     Indication: GASTRIC CANCER
     Dosage: 9 MG, UNK
     Route: 042
     Dates: start: 20090121

REACTIONS (2)
  - ANASTOMOTIC LEAK [None]
  - PAINFUL RESPIRATION [None]
